FAERS Safety Report 8980692 (Version 1)
Quarter: 2012Q4

REPORT INFORMATION
  Report Type: 
  Country: US (occurrence: US)
  Receive Date: 20121221
  Receipt Date: 20121221
  Transmission Date: 20130627
  Serious: No
  Sender: FDA-Public Use
  Company Number: US-ASTRAZENECA-2012SE93036

PATIENT
  Age: 74 Year
  Sex: Male
  Weight: 77.1 kg

DRUGS (4)
  1. SYMBICORT PMDI [Suspect]
     Indication: CHRONIC OBSTRUCTIVE PULMONARY DISEASE
     Dosage: 160/4.5, FREQUENCY UNKNOWN
     Route: 055
     Dates: start: 201206
  2. SYMBICORT PMDI [Suspect]
     Indication: LUNG DISORDER
     Dosage: 160/4.5, FREQUENCY UNKNOWN
     Route: 055
     Dates: start: 201206
  3. COMBIVENT [Concomitant]
  4. ALBUTEROL [Concomitant]

REACTIONS (2)
  - Low density lipoprotein increased [Unknown]
  - Glycosylated haemoglobin increased [Unknown]
